FAERS Safety Report 24984516 (Version 1)
Quarter: 2025Q1

REPORT INFORMATION
  Report Type: Spontaneous
  Country: US (occurrence: US)
  Receive Date: 20250219
  Receipt Date: 20250219
  Transmission Date: 20250408
  Serious: Yes (Other)
  Sender: PROCTER AND GAMBLE
  Company Number: US-PROCTER_AND_GAMBLE-PH25001083

PATIENT
  Age: 6 Decade
  Sex: Female

DRUGS (1)
  1. VICKS DAYQUIL COLD AND FLU [Suspect]
     Active Substance: ACETAMINOPHEN\DEXTROMETHORPHAN HYDROBROMIDE\PHENYLEPHRINE HYDROCHLORIDE
     Indication: Nasopharyngitis
     Route: 048
     Dates: start: 2025, end: 2025

REACTIONS (9)
  - Foreign body in throat [Recovered/Resolved]
  - Asphyxia [Unknown]
  - Exophthalmos [Unknown]
  - Panic reaction [Unknown]
  - Dyspnoea [Unknown]
  - Pallor [Unknown]
  - Hypotonia [Unknown]
  - Product physical issue [Unknown]
  - Product size issue [Unknown]

NARRATIVE: CASE EVENT DATE: 20250101
